FAERS Safety Report 22262060 (Version 1)
Quarter: 2023Q2

REPORT INFORMATION
  Report Type: Spontaneous
  Country: CN (occurrence: CN)
  Receive Date: 20230428
  Receipt Date: 20230428
  Transmission Date: 20230721
  Serious: Yes (Other)
  Sender: FDA-Public Use
  Company Number: None

PATIENT
  Age: 51 Year
  Sex: Female
  Weight: 65.4 kg

DRUGS (7)
  1. CYCLOPHOSPHAMIDE [Suspect]
     Active Substance: CYCLOPHOSPHAMIDE
     Indication: Breast cancer
     Dosage: 0.8 G, QD, DILUTED WITH 0.9% SODIUM CHLORIDE 100ML, AS PART OF TC REGIMEN, FIRST CHEMOTHERAPY
     Route: 041
     Dates: start: 20230330, end: 20230330
  2. CYCLOPHOSPHAMIDE [Suspect]
     Active Substance: CYCLOPHOSPHAMIDE
     Indication: Chemotherapy
  3. SODIUM CHLORIDE [Suspect]
     Active Substance: SODIUM CHLORIDE
     Indication: Medication dilution
     Dosage: AT 09:05, 100 ML, QD, STRENGTH: 0.9%, DOSAGE FORM: INJECTION, USED TO DILUTE DOCETAXEL 20MG, AS PART
     Route: 041
     Dates: start: 20230330, end: 20230330
  4. DOCETAXEL [Suspect]
     Active Substance: DOCETAXEL
     Indication: Breast cancer
     Dosage: AT 09:05, 90 MG, QD, FULL DOSE, DILUTED WITH 0.9% SODIUM CHLORIDE 250ML, AS PART OF TC REGIMEN, FIRS
     Route: 041
     Dates: start: 20230330, end: 20230330
  5. DOCETAXEL [Suspect]
     Active Substance: DOCETAXEL
     Indication: Chemotherapy
     Dosage: AT 09:05, 20 MG, QD, DILUTED WITH 0.9% SODIUM CHLORIDE 100ML, AS PART OF TC REGIMEN, FIRST CHEMOTHER
     Route: 042
     Dates: start: 20230330, end: 20230330
  6. SODIUM CHLORIDE [Suspect]
     Active Substance: SODIUM CHLORIDE
     Indication: Breast cancer
     Dosage: 100 ML, QD, USED TO DILUTE CYCLOPHOSPHAMIDE 0.8G, TC REGIMEN, FIRST CHEMOTHERAPY
     Route: 041
     Dates: start: 20230330, end: 20230330
  7. SODIUM CHLORIDE [Suspect]
     Active Substance: SODIUM CHLORIDE
     Indication: Chemotherapy
     Dosage: AT 09:05, 250 ML, QD, FULL DOSE, USED TO DILUTE DOCETAXEL 90MG, AS PART OF TC REGIMEN, FIRST CHEMOTH
     Route: 041
     Dates: start: 20230330, end: 20230330

REACTIONS (2)
  - White blood cell count decreased [Recovering/Resolving]
  - Neutrophil count decreased [Recovering/Resolving]

NARRATIVE: CASE EVENT DATE: 20230405
